FAERS Safety Report 18673966 (Version 4)
Quarter: 2021Q3

REPORT INFORMATION
  Report Type: Spontaneous
  Country: US (occurrence: US)
  Receive Date: 20201228
  Receipt Date: 20210930
  Transmission Date: 20211014
  Serious: No
  Sender: FDA-Public Use
  Company Number: US-AMGEN INC.-USASP2020210145

PATIENT
  Age: 57 Year
  Sex: Female

DRUGS (4)
  1. IMITREX [Concomitant]
     Active Substance: SUMATRIPTAN SUCCINATE
  2. SUMATRIPTAN. [Concomitant]
     Active Substance: SUMATRIPTAN
     Dosage: 1 TO 3 (100MG) PER DAY
     Route: 048
  3. AIMOVIG [Suspect]
     Active Substance: ERENUMAB-AOOE
     Dosage: 140 MILLIGRAM
     Route: 065
  4. AIMOVIG [Suspect]
     Active Substance: ERENUMAB-AOOE
     Indication: MIGRAINE PROPHYLAXIS
     Dosage: 140 MILLIGRAM
     Route: 065
     Dates: start: 2020

REACTIONS (3)
  - Therapeutic response shortened [Unknown]
  - Wrong technique in product usage process [Unknown]
  - Device difficult to use [Unknown]

NARRATIVE: CASE EVENT DATE: 202012
